FAERS Safety Report 5489816-0 (Version None)
Quarter: 2007Q4

REPORT INFORMATION
  Report Type: 
  Country: None (occurrence: None)
  Receive Date: 20071018
  Receipt Date: 20071005
  Transmission Date: 20080405
  Serious: Yes (Other)
  Sender: FDA-Public Use
  Company Number: US-BRISTOL-MYERS SQUIBB COMPANY-12200622

PATIENT
  Age: 25 Year
  Sex: Male

DRUGS (5)
  1. EFAVIRENZ [Suspect]
     Indication: HIV INFECTION
     Route: 048
     Dates: start: 20011022, end: 20011023
  2. STAVUDINE [Suspect]
     Indication: HIV INFECTION
     Dates: start: 19971101, end: 20011023
  3. LAMIVUDINE [Suspect]
     Indication: HIV INFECTION
     Route: 048
     Dates: start: 19971111
  4. INSULIN [Concomitant]
     Dates: start: 20010401
  5. NELFINAVIR MESYLATE [Concomitant]
     Dates: start: 20011023

REACTIONS (5)
  - ASTHENIA [None]
  - CONFUSIONAL STATE [None]
  - DIZZINESS [None]
  - FEELING COLD [None]
  - HALLUCINATION [None]
